FAERS Safety Report 20220732 (Version 1)
Quarter: 2021Q4

REPORT INFORMATION
  Report Type: Spontaneous
  Country: US (occurrence: US)
  Receive Date: 20211223
  Receipt Date: 20211223
  Transmission Date: 20220304
  Serious: No
  Sender: FDA-Public Use
  Company Number: US-BAUSCH-BL-2021-041663

PATIENT
  Age: 74 Year
  Sex: Female

DRUGS (2)
  1. DEXAMETHASONE\NEOMYCIN\POLYMYXIN B SULFATE [Suspect]
     Active Substance: DEXAMETHASONE\NEOMYCIN\POLYMYXIN B SULFATE
     Indication: Accidental poisoning
     Dosage: 1 DROP IN EACH EYE 3 TIMES A DAY
     Route: 047
     Dates: start: 202112, end: 20211209
  2. ARTIFICIAL TEARS [Concomitant]
     Active Substance: GLYCERIN\HYPROMELLOSES\POLYETHYLENE GLYCOL 400
     Indication: Product used for unknown indication

REACTIONS (7)
  - Muscle twitching [Recovering/Resolving]
  - Throat irritation [Recovering/Resolving]
  - Insomnia [Recovering/Resolving]
  - Photopsia [Recovering/Resolving]
  - Glossodynia [Recovering/Resolving]
  - Instillation site erythema [Not Recovered/Not Resolved]
  - Rash [Unknown]

NARRATIVE: CASE EVENT DATE: 20211201
